FAERS Safety Report 4301738-7 (Version None)
Quarter: 2004Q1

REPORT INFORMATION
  Report Type: 
  Country: None (occurrence: None)
  Receive Date: 20040219
  Receipt Date: 20040210
  Transmission Date: 20041129
  Serious: Yes (Hospitalization)
  Sender: FDA-Public Use
  Company Number: US-JNJFOC-20040103545

PATIENT
  Age: 62 Year
  Sex: Female
  Weight: 81.7 kg

DRUGS (13)
  1. NATRECOR [Suspect]
     Indication: CARDIAC FAILURE CONGESTIVE
     Dosage: 0.01 UG/KG/MIN, INTRAVENOUS
     Route: 042
     Dates: start: 20030129
  2. HYDRALAZINE (HYDRALAZINE) TABLETS [Suspect]
     Indication: BLOOD PRESSURE
     Dosage: 100 MG, 3 IN 1 DAY, ORAL
     Route: 048
     Dates: end: 20040101
  3. IMDUR [Concomitant]
  4. PLAVIX [Concomitant]
  5. TOPROL XL (METOPROLOL SUCCINATE) TABLETS [Concomitant]
  6. DEMEDEX  (TORASEMIDE) TABLETS [Concomitant]
  7. NPH INSULIN [Concomitant]
  8. NITRO PATCH (GLYCERYL TRINITRATE) PATCH [Concomitant]
  9. ASPIRIN [Concomitant]
  10. COLACE (DOCUSATE SODIUM) [Concomitant]
  11. ZETIA (ALL OTHER NON-THERAPEUTIC PRODUCTS) TABLETS [Concomitant]
  12. FEOSOL (FERROUS SULFATE) TABLETS [Concomitant]
  13. PROCRIT (ERYTHROPOIETIN) INJECTION [Concomitant]

REACTIONS (12)
  - ANAEMIA [None]
  - ASTHENIA [None]
  - BLOOD CHLORIDE DECREASED [None]
  - BLOOD CREATININE INCREASED [None]
  - BLOOD GLUCOSE INCREASED [None]
  - BLOOD SODIUM DECREASED [None]
  - BLOOD UREA INCREASED [None]
  - MUSCULAR WEAKNESS [None]
  - PAIN IN EXTREMITY [None]
  - RASH [None]
  - RED BLOOD CELL SEDIMENTATION RATE INCREASED [None]
  - STOMATITIS [None]
